FAERS Safety Report 9780364 (Version 3)
Quarter: 2013Q4

REPORT INFORMATION
  Report Type: Report from Study
  Country: RU (occurrence: RU)
  Receive Date: 20131224
  Receipt Date: 20131226
  Transmission Date: 20140711
  Serious: Yes (Other)
  Sender: FDA-Public Use
  Company Number: RU-ROCHE-1297096

PATIENT
  Age: 74 Year
  Sex: Female
  Weight: 78 kg

DRUGS (6)
  1. AVASTIN [Suspect]
     Indication: RECTAL CANCER METASTATIC
     Route: 065
     Dates: start: 20120725
  2. XELODA [Suspect]
     Indication: RECTAL CANCER METASTATIC
     Route: 048
     Dates: start: 20120725, end: 20130222
  3. XELODA [Suspect]
     Route: 048
     Dates: start: 20130517, end: 20130927
  4. XELODA [Suspect]
     Route: 048
     Dates: start: 20131115
  5. UFT [Suspect]
     Indication: RECTAL CANCER METASTATIC
     Route: 065
     Dates: start: 20130830
  6. UFT [Suspect]
     Dosage: DOSE CHANGED DUE TO EVENT OF ABDOMINAL PAIN.
     Route: 065
     Dates: end: 20131115

REACTIONS (2)
  - Disease progression [Not Recovered/Not Resolved]
  - Abdominal pain [Recovered/Resolved]
